FAERS Safety Report 8436842-5 (Version None)
Quarter: 2012Q2

REPORT INFORMATION
  Report Type: 
  Country: None (occurrence: None)
  Receive Date: 20120614
  Receipt Date: 20120607
  Transmission Date: 20120825
  Serious: Yes (Other)
  Sender: FDA-Public Use
  Company Number: US-BAYER-2012-058644

PATIENT
  Age: 70 Year
  Sex: Male
  Weight: 75 kg

DRUGS (10)
  1. HEPARIN [Concomitant]
     Dosage: UNK
     Dates: start: 20000913, end: 20000913
  2. SOLU-MEDROL [Concomitant]
     Dosage: UNK
     Dates: start: 20000913, end: 20000913
  3. ZINACEF [Concomitant]
     Dosage: UNK
     Dates: start: 20000913, end: 20000913
  4. VANCOMYCIN [Concomitant]
     Dosage: 1 G, UNK
     Dates: start: 20000913, end: 20000913
  5. TRASYLOL [Suspect]
     Indication: CORONARY ARTERY BYPASS
     Dosage: 200 ML PUMP PRIME
     Route: 042
     Dates: start: 20000913, end: 20000913
  6. PROTAMINE SULFATE [Concomitant]
     Dosage: UNK
     Dates: start: 20000913, end: 20000913
  7. CEFUROXIME [Concomitant]
     Dosage: UNK
     Dates: start: 20000913, end: 20000913
  8. MANNITOL [Concomitant]
     Dosage: 25 G, UNK
     Dates: start: 20000913, end: 20000913
  9. FENTANYL [Concomitant]
     Dosage: UNK
     Dates: start: 20000913, end: 20000913
  10. VERSED [Concomitant]
     Dosage: UNK
     Dates: start: 20000913, end: 20000913

REACTIONS (1)
  - RENAL FAILURE ACUTE [None]
